FAERS Safety Report 4715360-1 (Version None)
Quarter: 2005Q3

REPORT INFORMATION
  Report Type: 
  Country: None (occurrence: None)
  Receive Date: 20050715
  Receipt Date: 20050310
  Transmission Date: 20060218
  Serious: Yes (Hospitalization, Disabling)
  Sender: FDA-Public Use
  Company Number: US-MERCK-0503USA02335

PATIENT
  Sex: Female
  Weight: 205 kg

DRUGS (5)
  1. VIOXX [Suspect]
     Indication: ARTHRITIS
     Route: 048
     Dates: start: 20000228, end: 20010101
  2. ACETAMINOPHEN [Concomitant]
     Route: 065
     Dates: start: 20000101, end: 20040101
  3. GLIPIZIDE [Concomitant]
     Route: 065
     Dates: end: 20010115
  4. ZESTORETIC [Concomitant]
     Route: 065
     Dates: start: 20000327, end: 20030101
  5. CELEBREX [Concomitant]
     Route: 065
     Dates: start: 20000601, end: 20010201

REACTIONS (1)
  - CEREBROVASCULAR ACCIDENT [None]
